FAERS Safety Report 7543569-0 (Version None)
Quarter: 2011Q2

REPORT INFORMATION
  Report Type: 
  Country: None (occurrence: None)
  Receive Date: 20110613
  Receipt Date: 20020827
  Transmission Date: 20111010
  Serious: Yes (Death)
  Sender: FDA-Public Use
  Company Number: PHHO1998GB11862

PATIENT
  Sex: Female
  Weight: 52 kg

DRUGS (6)
  1. PREDNISOLONE [Concomitant]
     Dosage: 5 MG, QD
     Route: 048
  2. RANITIDINE [Concomitant]
  3. AZATHIOPRINE [Concomitant]
     Dosage: 50 MG, QD
     Route: 048
  4. DOXAZOSIN MESYLATE [Concomitant]
  5. NEORAL [Suspect]
     Dosage: 200 MG, QD
     Route: 048
     Dates: start: 19960404
  6. CEPHRADINE [Concomitant]

REACTIONS (2)
  - GASTROINTESTINAL HAEMORRHAGE [None]
  - INTESTINAL PERFORATION [None]
